FAERS Safety Report 19908559 (Version 3)
Quarter: 2021Q4

REPORT INFORMATION
  Report Type: Spontaneous
  Country: CA (occurrence: CA)
  Receive Date: 20211001
  Receipt Date: 20211216
  Transmission Date: 20220303
  Serious: Yes (Other)
  Sender: FDA-Public Use
  Company Number: CA-PFIZER INC-202101264409

PATIENT
  Age: 40 Year
  Sex: Female

DRUGS (6)
  1. CELEBREX [Suspect]
     Active Substance: CELECOXIB
     Dosage: 1 DF, (DOSAGE NOT AVAILABLE)
     Route: 065
  2. AMOXICILLIN [Concomitant]
     Active Substance: AMOXICILLIN
     Dosage: 1 DF, (DOSAGE NOT AVAILABLE)
     Route: 065
  3. GABAPENTIN [Concomitant]
     Active Substance: GABAPENTIN
     Dosage: 1 DF, (DOSAGE NOT AVAILABLE)
     Route: 065
  4. METHOTREXATE [Concomitant]
     Active Substance: METHOTREXATE
     Dosage: 10 MG, WEEKLY
     Route: 048
  5. PLAQUENIL [Concomitant]
     Active Substance: HYDROXYCHLOROQUINE SULFATE
     Dosage: 1 DF, (DOSAGE NOT AVAILABLE)
     Route: 065
  6. PLAQUENIL [Concomitant]
     Active Substance: HYDROXYCHLOROQUINE SULFATE
     Dosage: 200 MG, DAILY
     Route: 048

REACTIONS (7)
  - Osteomyelitis [Not Recovered/Not Resolved]
  - Neoplasm malignant [Not Recovered/Not Resolved]
  - Renal neoplasm [Not Recovered/Not Resolved]
  - Joint swelling [Unknown]
  - Musculoskeletal stiffness [Unknown]
  - Arthralgia [Unknown]
  - C-reactive protein increased [Unknown]

NARRATIVE: CASE EVENT DATE: 20210101
